FAERS Safety Report 5755092-4 (Version None)
Quarter: 2008Q2

REPORT INFORMATION
  Report Type: 
  Country: None (occurrence: None)
  Receive Date: 20080602
  Receipt Date: 20080108
  Transmission Date: 20081010
  Serious: No
  Sender: FDA-Public Use
  Company Number: A0702459A

PATIENT
  Age: 75 Year
  Sex: Female

DRUGS (7)
  1. AUGMENTIN '125' [Suspect]
     Indication: DIVERTICULITIS
     Dosage: 500MG TWICE PER DAY
     Route: 048
     Dates: start: 20080107
  2. ZANTAC [Concomitant]
  3. COUMADIN [Concomitant]
  4. DYAZIDE [Concomitant]
  5. POTASSIUM CHLORIDE [Concomitant]
  6. VERAPAMIL [Concomitant]
  7. PROPRANOLOL [Concomitant]

REACTIONS (3)
  - APHONIA [None]
  - COUGH [None]
  - HYPERSENSITIVITY [None]
